FAERS Safety Report 9069832 (Version 1)
Quarter: 2013Q1

REPORT INFORMATION
  Report Type: Report from Study
  Country: US (occurrence: US)
  Receive Date: 20130129
  Receipt Date: 20130129
  Transmission Date: 20140127
  Serious: No
  Sender: FDA-Public Use
  Company Number: US-ABBOTT-12P-163-0940854-00

PATIENT
  Age: 58 Year
  Sex: Male

DRUGS (3)
  1. HUMIRA 40 MG/0.8 ML PEN [Suspect]
     Indication: CROHN^S DISEASE
     Dosage: 1 DOSE ON 18 MAY 2012
     Dates: start: 20120518
  2. PENTASA [Concomitant]
     Indication: CROHN^S DISEASE
     Dosage: 4 TABS IN AM AND 4 TABS IN PM
  3. LOSARTAN/HYDROCHLOROTHIAZIDE [Concomitant]
     Indication: HYPERTENSION
     Dosage: 100/25 1 TAB DAILY

REACTIONS (2)
  - Pain [Recovered/Resolved]
  - Unevaluable event [Recovered/Resolved]
